FAERS Safety Report 6412989-X (Version None)
Quarter: 2009Q4

REPORT INFORMATION
  Report Type: 
  Country: None (occurrence: None)
  Receive Date: 20091023
  Receipt Date: 20091015
  Transmission Date: 20100525
  Serious: Yes (Hospitalization)
  Sender: FDA-Public Use
  Company Number: PHHY2009JP45061

PATIENT
  Age: 70 Year
  Sex: Female

DRUGS (4)
  1. TEGRETOL [Suspect]
     Indication: FACIAL SPASM
     Dosage: UNK
     Route: 048
     Dates: start: 20090701, end: 20091008
  2. LOSARTAN POTASSIUM AND HYDROCHLOROTHIAZIDE [Concomitant]
     Dosage: UNK
     Route: 048
  3. MEILAX [Concomitant]
     Dosage: UNK
     Route: 048
  4. ADALAT [Concomitant]
     Route: 048

REACTIONS (3)
  - BLOOD CHLORIDE DECREASED [None]
  - BRADYCARDIA [None]
  - HYPONATRAEMIA [None]
